FAERS Safety Report 13362969 (Version 1)
Quarter: 2017Q1

REPORT INFORMATION
  Report Type: Report from Study
  Country: None (occurrence: BR)
  Receive Date: 20170323
  Receipt Date: 20170323
  Transmission Date: 20170429
  Serious: Yes (Other)
  Sender: FDA-Public Use
  Company Number: BR-ABBVIE-17P-020-1910635-00

PATIENT
  Sex: Female

DRUGS (1)
  1. HUMIRA [Suspect]
     Active Substance: ADALIMUMAB
     Indication: PRODUCT USED FOR UNKNOWN INDICATION
     Route: 058

REACTIONS (7)
  - Cerebrovascular accident [Unknown]
  - Hypertension [Unknown]
  - Depression [Unknown]
  - Fibromyalgia [Unknown]
  - Brain hypoxia [Unknown]
  - Chronic gastritis [Unknown]
  - Drug ineffective [Unknown]
